FAERS Safety Report 11552201 (Version 1)
Quarter: 2015Q3

REPORT INFORMATION
  Report Type: Other
  Country: IT (occurrence: IT)
  Receive Date: 20150925
  Receipt Date: 20150925
  Transmission Date: 20151125
  Serious: Yes (Other)
  Sender: FDA-Public Use
  Company Number: IT-SUN PHARMACEUTICAL INDUSTRIES LTD-2013SUN04964

PATIENT

DRUGS (4)
  1. CONGESCOR [Concomitant]
     Active Substance: BISOPROLOL
     Route: 065
  2. OXALIPLATIN. [Suspect]
     Active Substance: OXALIPLATIN
     Indication: PANCREATIC CARCINOMA
     Dosage: 1 UNIT (POWDER AND SOLVENT FOR SOLUTION FOR INFUSION)
     Route: 042
  3. SELEPARINA [Concomitant]
     Active Substance: NADROPARIN CALCIUM
     Route: 065
  4. LANOXIN [Concomitant]
     Active Substance: DIGOXIN
     Route: 065

REACTIONS (5)
  - Cold sweat [Recovering/Resolving]
  - Dyspnoea [Recovering/Resolving]
  - Vomiting [Recovering/Resolving]
  - Tachyarrhythmia [Recovering/Resolving]
  - Throat tightness [Recovering/Resolving]

NARRATIVE: CASE EVENT DATE: 20130629
